FAERS Safety Report 21956116 (Version 1)
Quarter: 2023Q1

REPORT INFORMATION
  Report Type: Spontaneous
  Country: DE (occurrence: DE)
  Receive Date: 20230206
  Receipt Date: 20230206
  Transmission Date: 20230417
  Serious: Yes (Other)
  Sender: FDA-Public Use
  Company Number: DE-ALKEM LABORATORIES LIMITED-DE-ALKEM-2023-00885

PATIENT
  Age: 34 Year
  Sex: Male
  Weight: 60 kg

DRUGS (4)
  1. IBUPROFEN [Suspect]
     Active Substance: IBUPROFEN
     Indication: Product used for unknown indication
     Dosage: 30 DOSAGE FORM, QD
     Route: 048
     Dates: start: 20220523, end: 20220523
  2. LORATADINE [Suspect]
     Active Substance: LORATADINE
     Indication: Product used for unknown indication
     Dosage: 10 DOSAGE FORM, QD
     Route: 048
     Dates: start: 20220523, end: 20220523
  3. CHOLECALCIFEROL\SODIUM FLUORIDE [Suspect]
     Active Substance: CHOLECALCIFEROL\SODIUM FLUORIDE
     Indication: Product used for unknown indication
     Dosage: 4 DOSAGE FORM, QD
     Route: 048
     Dates: start: 20220523, end: 20220523
  4. DIETARY SUPPLEMENT [Suspect]
     Active Substance: DIETARY SUPPLEMENT
     Indication: Product used for unknown indication
     Dosage: 20 DOSAGE FORM, QD
     Route: 048
     Dates: start: 20220523, end: 20220523

REACTIONS (4)
  - Intentional self-injury [Unknown]
  - Suicide attempt [Unknown]
  - Poor quality sleep [Unknown]
  - Intentional overdose [Unknown]

NARRATIVE: CASE EVENT DATE: 20220523
